FAERS Safety Report 6068632-5 (Version None)
Quarter: 2009Q1

REPORT INFORMATION
  Report Type: 
  Country: None (occurrence: None)
  Receive Date: 20090203
  Receipt Date: 20090120
  Transmission Date: 20090719
  Serious: Yes (Death)
  Sender: FDA-Public Use
  Company Number: 2009159707

PATIENT
  Sex: Female

DRUGS (1)
  1. FRAGMIN [Suspect]
     Indication: VENOUS THROMBOSIS

REACTIONS (2)
  - BREAST CANCER METASTATIC [None]
  - CONDITION AGGRAVATED [None]
